FAERS Safety Report 5826224-4 (Version None)
Quarter: 2008Q3

REPORT INFORMATION
  Report Type: 
  Country: None (occurrence: None)
  Receive Date: 20080723
  Receipt Date: 20080711
  Transmission Date: 20090109
  Serious: Yes (Death, Hospitalization, Other)
  Sender: FDA-Public Use
  Company Number: WAES 99055059

PATIENT
  Age: 20 Year
  Sex: Female

DRUGS (14)
  1. SINGULAIR [Suspect]
     Indication: ASTHMA
     Dosage: 10 MG/BID INH
     Route: 055
     Dates: start: 19990501, end: 19990501
  2. ALBUTEROL [Concomitant]
  3. AMINOPHYLLINE [Concomitant]
  4. BUDESONIDE [Concomitant]
  5. CHLORPHENIRAMINE MALEATE [Concomitant]
  6. FOLIC ACID [Concomitant]
  7. HYDROCORTISONE [Concomitant]
  8. IPRAPRATROPIUM BROMIDE [Concomitant]
  9. LACTULOSE [Concomitant]
  10. MAGNESIUM PREPARATION (COMPOSITION UNSPE [Concomitant]
  11. PIPERACILLIN NA/TAZOBACTAM NA [Concomitant]
  12. PREDNISOLONE [Concomitant]
  13. SALMETEROL L-HYDROXY-2-NAPHTHOATE [Concomitant]
  14. SURICLONE [Concomitant]

REACTIONS (17)
  - ABORTION SPONTANEOUS [None]
  - ASTHMA [None]
  - COLLAPSE OF LUNG [None]
  - CYTOGENETIC ABNORMALITY [None]
  - DRUG EXPOSURE DURING PREGNANCY [None]
  - FOETAL GROWTH RETARDATION [None]
  - GENERAL PHYSICAL HEALTH DETERIORATION [None]
  - HEART DISEASE CONGENITAL [None]
  - HYPERCAPNIA [None]
  - INTRA-UTERINE DEATH [None]
  - LIMB REDUCTION DEFECT [None]
  - MATERNAL DRUGS AFFECTING FOETUS [None]
  - PRODUCTIVE COUGH [None]
  - SKULL MALFORMATION [None]
  - SPUTUM DISCOLOURED [None]
  - THERAPEUTIC RESPONSE DECREASED [None]
  - TREATMENT NONCOMPLIANCE [None]
